FAERS Safety Report 19220288 (Version 3)
Quarter: 2021Q2

REPORT INFORMATION
  Report Type: Spontaneous
  Country: NL (occurrence: NL)
  Receive Date: 20210505
  Receipt Date: 20210622
  Transmission Date: 20210717
  Serious: Yes (Other)
  Sender: FDA-Public Use
  Company Number: NL-PFIZER INC-2021456446

PATIENT
  Sex: Female

DRUGS (3)
  1. THYRAX DUO [Interacting]
     Active Substance: LEVOTHYROXINE SODIUM
     Dosage: 25 UG
     Route: 065
  2. THYRAX DUO [Interacting]
     Active Substance: LEVOTHYROXINE SODIUM
     Indication: THYROID DISORDER
     Dosage: 100 UG
     Route: 065
  3. PANTOPRAZOLE [Suspect]
     Active Substance: PANTOPRAZOLE
     Indication: HELICOBACTER INFECTION
     Dosage: 40 MILLIGRAM, QD
     Route: 065
     Dates: start: 20210302, end: 20210408

REACTIONS (2)
  - Hypothyroidism [Recovering/Resolving]
  - Drug interaction [Unknown]
